FAERS Safety Report 17316504 (Version 1)
Quarter: 2020Q1

REPORT INFORMATION
  Report Type: Spontaneous
  Country: IN (occurrence: IN)
  Receive Date: 20200124
  Receipt Date: 20200124
  Transmission Date: 20200409
  Serious: Yes (Hospitalization)
  Sender: FDA-Public Use
  Company Number: IN-UPSHER-SMITH LABORATORIES, LLC-2020USL00025

PATIENT
  Age: 21 Year
  Sex: Male

DRUGS (3)
  1. BOLDENONE UNDECYLENATE [Suspect]
     Active Substance: BOLDENONE UNDECYLENATE
     Indication: MUSCLE BUILDING THERAPY
     Dosage: 250 MG (1 ML), 2X/WEEK
     Route: 030
  2. NANDROLONE DECANOATE. [Suspect]
     Active Substance: NANDROLONE DECANOATE
     Indication: MUSCLE BUILDING THERAPY
     Dosage: 250 MG (1 ML), 2X/WEEK
     Route: 030
  3. TESTOSTERONE. [Suspect]
     Active Substance: TESTOSTERONE
     Indication: MUSCLE BUILDING THERAPY
     Dosage: 250 MG (1 ML), 2X/WEEK
     Route: 030

REACTIONS (3)
  - Lymphadenitis bacterial [Recovered/Resolved]
  - Extrapulmonary tuberculosis [Recovered/Resolved]
  - Drug abuse [Unknown]
